FAERS Safety Report 19047384 (Version 1)
Quarter: 2021Q1

REPORT INFORMATION
  Report Type: Report from Study
  Country: US (occurrence: US)
  Receive Date: 20210323
  Receipt Date: 20210323
  Transmission Date: 20210420
  Serious: Yes (Other)
  Sender: FDA-Public Use
  Company Number: US-BAYER-2021-109712

PATIENT
  Age: 58 Year
  Sex: Female

DRUGS (8)
  1. GABAPENTIN. [Concomitant]
     Active Substance: GABAPENTIN
  2. TURMERIC [CURCUMA LONGA] [Concomitant]
     Active Substance: HERBALS\TURMERIC
  3. STIVARGA [Suspect]
     Active Substance: REGORAFENIB
     Indication: COLON CANCER
     Dosage: DAILY DOSE 40 MG FOR DAYS 1 TO 14 OF A 21 DAY CYCLE
     Route: 048
     Dates: start: 20200923
  4. LYRICA [Concomitant]
     Active Substance: PREGABALIN
  5. VITAMIN D [VITAMIN D NOS] [Concomitant]
     Active Substance: VITAMIN D NOS
  6. VITAMINS NOS [Concomitant]
     Active Substance: VITAMINS
  7. ACETAMINOPHEN. [Concomitant]
     Active Substance: ACETAMINOPHEN
  8. IBUPROFEN. [Concomitant]
     Active Substance: IBUPROFEN

REACTIONS (3)
  - Pain in extremity [Unknown]
  - Off label use [None]
  - Neuropathy peripheral [Unknown]

NARRATIVE: CASE EVENT DATE: 20200923
